FAERS Safety Report 5562746-1 (Version None)
Quarter: 2007Q4

REPORT INFORMATION
  Report Type: 
  Country: None (occurrence: None)
  Receive Date: 20071217
  Receipt Date: 20071210
  Transmission Date: 20080405
  Serious: Yes (Other)
  Sender: FDA-Public Use
  Company Number: PHBS2007AU20651

PATIENT
  Age: 79 Year
  Sex: Male

DRUGS (2)
  1. PIMECROLIMUS [Suspect]
     Route: 061
  2. FLUOROURACIL [Concomitant]

REACTIONS (1)
  - ERYTHROPLASIA OF PENIS [None]
